FAERS Safety Report 9779631 (Version 1)
Quarter: 2013Q4

REPORT INFORMATION
  Report Type: Spontaneous
  Country: ES (occurrence: ES)
  Receive Date: 20131223
  Receipt Date: 20131223
  Transmission Date: 20140711
  Serious: Yes (Other)
  Sender: FDA-Public Use
  Company Number: ES-ABBVIE-13P-144-1182326-00

PATIENT
  Age: 66 Year
  Sex: Female

DRUGS (1)
  1. SECALIP [Suspect]
     Indication: HYPERTRIGLYCERIDAEMIA
     Route: 048
     Dates: start: 20130904

REACTIONS (1)
  - Vasculitis [Recovered/Resolved]
